FAERS Safety Report 6522413-4 (Version None)
Quarter: 2009Q4

REPORT INFORMATION
  Report Type: 
  Country: None (occurrence: None)
  Receive Date: 20091229
  Receipt Date: 20091229
  Transmission Date: 20100525
  Serious: No
  Sender: FDA-Public Use
  Company Number: None

PATIENT
  Age: 23 Year
  Sex: Female
  Weight: 49.8957 kg

DRUGS (1)
  1. KENALOG [Suspect]
     Dosage: ONE SHOT ONCE
     Dates: start: 20090923, end: 20090923

REACTIONS (4)
  - EMOTIONAL DISORDER [None]
  - INJECTION SITE DISCOLOURATION [None]
  - INJECTION SITE DRYNESS [None]
  - INJECTION SITE INDURATION [None]
